FAERS Safety Report 9629474 (Version 1)
Quarter: 2013Q4

REPORT INFORMATION
  Report Type: Spontaneous
  Country: FR (occurrence: FR)
  Receive Date: 20131017
  Receipt Date: 20131017
  Transmission Date: 20140711
  Serious: Yes (Hospitalization)
  Sender: FDA-Public Use
  Company Number: FR-PFIZER INC-2013291582

PATIENT
  Age: 61 Year
  Sex: Female

DRUGS (3)
  1. DALACINE [Suspect]
     Indication: ABSCESS SOFT TISSUE
     Dosage: UNK
     Route: 048
     Dates: start: 20130330, end: 20130424
  2. BACTRIM FORTE [Suspect]
     Indication: ABSCESS SOFT TISSUE
     Dosage: UNK
     Route: 048
     Dates: start: 20130414, end: 20130424
  3. ORBENINE [Concomitant]
     Indication: ABSCESS SOFT TISSUE
     Dosage: UNK
     Route: 042
     Dates: start: 20130402, end: 20130414

REACTIONS (2)
  - Pancytopenia [Recovered/Resolved]
  - Pyrexia [Recovered/Resolved]
